FAERS Safety Report 9462822 (Version 2)
Quarter: 2013Q3

REPORT INFORMATION
  Report Type: Spontaneous
  Country: US (occurrence: US)
  Receive Date: 20130816
  Receipt Date: 20130919
  Transmission Date: 20140515
  Serious: No
  Sender: FDA-Public Use
  Company Number: US-TEVA-425494USA

PATIENT
  Age: 27 Year
  Sex: Female
  Weight: 62.65 kg

DRUGS (2)
  1. PARAGARD 380A [Suspect]
     Indication: CONTRACEPTION
     Route: 015
     Dates: start: 20120705, end: 20130808
  2. MULTIVITAMINS [Concomitant]
     Indication: MEDICAL DIET

REACTIONS (2)
  - Menstruation irregular [Unknown]
  - Device expulsion [Recovered/Resolved]
